FAERS Safety Report 8843253 (Version 2)
Quarter: 2012Q4

REPORT INFORMATION
  Report Type: 
  Country: US (occurrence: US)
  Receive Date: 20121016
  Receipt Date: 20121129
  Transmission Date: 20130627
  Serious: Yes (Other)
  Sender: FDA-Public Use
  Company Number: CHPA2012US021422

PATIENT
  Sex: Female

DRUGS (2)
  1. TRIAMINIC FEVER REDUCER PAIN RELIEVER [Suspect]
     Dosage: HALF A BOTTLE, ONCE/SINGLE
     Route: 048
     Dates: start: 20121008, end: 20121008
  2. TRIAMINIC FEVER REDUCER PAIN RELIEVER [Suspect]
     Dosage: Unk,  PRN
     Route: 048

REACTIONS (3)
  - Accidental overdose [Unknown]
  - Accidental exposure to product by child [Unknown]
  - No adverse event [Unknown]
